FAERS Safety Report 8616648 (Version 3)
Quarter: 2012Q4

REPORT INFORMATION
  Report Type: Report from Study
  Country: US (occurrence: US)
  Receive Date: 20120615
  Receipt Date: 20120830
  Transmission Date: 20130627
  Serious: Yes (Hospitalization)
  Sender: FDA-Public Use
  Company Number: US-JNJFOC-20120603306

PATIENT
  Age: 71 Year
  Sex: Male
  Weight: 140.62 kg

DRUGS (1)
  1. USTEKINUMAB [Suspect]
     Indication: PSORIASIS
     Route: 058
     Dates: start: 201111

REACTIONS (2)
  - Cardiac failure acute [Recovered/Resolved]
  - Bronchitis [Recovered/Resolved]
